FAERS Safety Report 22266602 (Version 1)
Quarter: 2023Q2

REPORT INFORMATION
  Report Type: Spontaneous
  Country: NL (occurrence: NL)
  Receive Date: 20230428
  Receipt Date: 20230428
  Transmission Date: 20230722
  Serious: Yes (Life-Threatening)
  Sender: FDA-Public Use
  Company Number: None

PATIENT
  Sex: Female
  Weight: 94 kg

DRUGS (1)
  1. PREGABALIN [Suspect]
     Active Substance: PREGABALIN
     Indication: Neuralgia
     Dosage: 300 MILLIGRAM DAILY;  BRAND NAME NOT SPECIFIED
     Dates: start: 20230329, end: 20230403

REACTIONS (2)
  - Amnesia [Recovering/Resolving]
  - Delusion [Recovering/Resolving]
